FAERS Safety Report 10983024 (Version 1)
Quarter: 2015Q2

REPORT INFORMATION
  Report Type: Spontaneous
  Country: US (occurrence: None)
  Receive Date: 20150402
  Receipt Date: 20150402
  Transmission Date: 20150821
  Serious: Yes (Other)
  Sender: FDA-Public Use
  Company Number: None

PATIENT
  Sex: Male
  Weight: 89.2 kg

DRUGS (9)
  1. PHENERGAN [Concomitant]
     Active Substance: PROMETHAZINE HYDROCHLORIDE
  2. FISH OIL OTC [Concomitant]
  3. MIRALAX OTC [Concomitant]
  4. HARVONI [Suspect]
     Active Substance: LEDIPASVIR\SOFOSBUVIR
     Indication: CHRONIC HEPATITIS C
     Dosage: 1 TABLET
     Route: 048
     Dates: start: 20150324, end: 20150330
  5. MORPHINE SULFATE. [Concomitant]
     Active Substance: MORPHINE SULFATE
  6. MULTIVITAMIN OTC [Concomitant]
  7. HYDROCODONE/APAP [Concomitant]
     Active Substance: ACETAMINOPHEN\HYDROCODONE
  8. XANAX [Concomitant]
     Active Substance: ALPRAZOLAM
  9. ALOA VERA OTC [Concomitant]

REACTIONS (3)
  - Head discomfort [None]
  - Sensory disturbance [None]
  - Heart rate increased [None]

NARRATIVE: CASE EVENT DATE: 20150330
